FAERS Safety Report 6103662-6 (Version None)
Quarter: 2009Q1

REPORT INFORMATION
  Report Type: 
  Country: None (occurrence: None)
  Receive Date: 20090302
  Receipt Date: 20090218
  Transmission Date: 20090719
  Serious: Yes (Other)
  Sender: FDA-Public Use
  Company Number: 2009SP003844

PATIENT
  Sex: Male

DRUGS (4)
  1. INTEGRILIN [Suspect]
     Indication: PERCUTANEOUS CORONARY INTERVENTION
     Dosage: INBO
  2. HEPARIN [Suspect]
     Indication: DRUG USE FOR UNKNOWN INDICATION
     Dosage: 5000 IU
  3. ASPIRIN (CON.) [Concomitant]
  4. PLAVIX (CON.) [Concomitant]

REACTIONS (4)
  - CHILLS [None]
  - CONVULSION [None]
  - PLATELET COUNT DECREASED [None]
  - TREMOR [None]
